FAERS Safety Report 6652169-6 (Version None)
Quarter: 2010Q1

REPORT INFORMATION
  Report Type: 
  Country: None (occurrence: None)
  Receive Date: 20100325
  Receipt Date: 20100316
  Transmission Date: 20100710
  Serious: Yes (Death, Disabling, Other)
  Sender: FDA-Public Use
  Company Number: US-AMGEN-US313491

PATIENT
  Sex: Male
  Weight: 92.9 kg

DRUGS (17)
  1. NPLATE [Suspect]
     Indication: IDIOPATHIC THROMBOCYTOPENIC PURPURA
     Route: 058
     Dates: start: 20081007
  2. ALBUTEROL SULATE [Concomitant]
  3. CALCIUM [Concomitant]
  4. FLUCONAZOLE [Concomitant]
     Route: 048
  5. FOLIC ACID [Concomitant]
     Route: 048
  6. LASIX [Concomitant]
  7. HYDROMET [Concomitant]
     Route: 048
  8. MULTI-VITAMINS [Concomitant]
  9. LOVAZA [Concomitant]
  10. OXYCODONE [Concomitant]
  11. BACTRIM [Concomitant]
  12. PENICILLIN G POTASSIUM [Concomitant]
  13. FORTEO [Concomitant]
     Route: 058
  14. METOPROLOL [Concomitant]
  15. LANSOPRAZOLE [Concomitant]
  16. ERGOCALCIFEROL [Concomitant]
  17. PREDNISONE TAB [Concomitant]
     Route: 048
     Dates: start: 19970101

REACTIONS (6)
  - ARTHRALGIA [None]
  - ASTHENIA [None]
  - DEATH [None]
  - HEADACHE [None]
  - NAUSEA [None]
  - SENSORY DISTURBANCE [None]
